FAERS Safety Report 4762179-1 (Version None)
Quarter: 2005Q3

REPORT INFORMATION
  Report Type: 
  Country: None (occurrence: None)
  Receive Date: 20050906
  Receipt Date: 20050906
  Transmission Date: 20060218
  Serious: Yes (Hospitalization)
  Sender: FDA-Public Use
  Company Number: None

PATIENT
  Age: 60 Year
  Sex: Female
  Weight: 137 kg

DRUGS (13)
  1. EZETIMIBE [Suspect]
     Indication: BLOOD CHOLESTEROL INCREASED
     Dosage: 10 MG PO DAILY [TO ADMISSION]
     Route: 048
  2. MS CONTIN [Concomitant]
  3. PEPCID [Concomitant]
  4. DILTIAZEM [Concomitant]
  5. TOREMIDE [Concomitant]
  6. PAXIL [Concomitant]
  7. LISINOPRIL [Concomitant]
  8. ATENOLOL [Concomitant]
  9. LIPITOR [Concomitant]
  10. K-DUR 10 [Concomitant]
  11. ASPIRIN [Concomitant]
  12. PLAVIX [Concomitant]
  13. HUMULIN 70/30 [Concomitant]

REACTIONS (6)
  - BLOOD GLUCOSE INCREASED [None]
  - CONFUSIONAL STATE [None]
  - DYSPNOEA [None]
  - IMMOBILE [None]
  - INFREQUENT BOWEL MOVEMENTS [None]
  - RHABDOMYOLYSIS [None]
